FAERS Safety Report 25846034 (Version 1)
Quarter: 2025Q3

REPORT INFORMATION
  Report Type: Spontaneous
  Country: US (occurrence: None)
  Receive Date: 20250924
  Receipt Date: 20250924
  Transmission Date: 20251020
  Serious: Yes (Other)
  Sender: FDA-CTU
  Company Number: None

PATIENT
  Age: 58 Year
  Sex: Male
  Weight: 86.7 kg

DRUGS (23)
  1. ERAVACYCLINE [Suspect]
     Active Substance: ERAVACYCLINE
     Indication: Neutropenia
     Dosage: FREQUENCY : TWICE A DAY;?
     Route: 042
     Dates: start: 20250910, end: 20250916
  2. LEVAQUIN [Suspect]
     Active Substance: LEVOFLOXACIN
     Indication: Neutropenia
     Dosage: FREQUENCY : DAILY;?
     Route: 048
     Dates: start: 20250910, end: 20250923
  3. ACYCLOVIR [Concomitant]
     Active Substance: ACYCLOVIR
  4. ATOVAQUONE [Concomitant]
     Active Substance: ATOVAQUONE
  5. bacitracin topical ointment [Concomitant]
  6. Peridex mouthwash [Concomitant]
  7. correction/SSIP insulin lispro [Concomitant]
  8. diclofenac topical gel [Concomitant]
  9. FAMOTIDINE [Concomitant]
     Active Substance: FAMOTIDINE
  10. filgrastim-aafi subcutaneous [Concomitant]
  11. INSULIN GLARGINE [Concomitant]
     Active Substance: INSULIN GLARGINE
  12. LIDOCAINE PATCH [Concomitant]
     Active Substance: LIDOCAINE
  13. LOPERAMIDE [Concomitant]
     Active Substance: LOPERAMIDE
  14. LORATADINE [Concomitant]
     Active Substance: LORATADINE
  15. MEROPENEM [Concomitant]
     Active Substance: MEROPENEM
  16. MYCOPHENOLIC ACID [Concomitant]
     Active Substance: MYCOPHENOLIC ACID
  17. NIFEDIPINE [Concomitant]
     Active Substance: NIFEDIPINE
  18. NIFEDIPINE [Concomitant]
     Active Substance: NIFEDIPINE
  19. PROCHLORPERAZINE [Concomitant]
     Active Substance: PROCHLORPERAZINE
  20. TACROLIMUS [Concomitant]
     Active Substance: TACROLIMUS
  21. URSODIOL [Concomitant]
     Active Substance: URSODIOL
  22. VANCOMYCIN [Concomitant]
     Active Substance: VANCOMYCIN
  23. VORICONAZOLE [Concomitant]
     Active Substance: VORICONAZOLE

REACTIONS (5)
  - Headache [None]
  - Therapy non-responder [None]
  - Platelet count decreased [None]
  - Blood pressure increased [None]
  - Central nervous system lesion [None]

NARRATIVE: CASE EVENT DATE: 20250922
